FAERS Safety Report 7639441-8 (Version None)
Quarter: 2011Q3

REPORT INFORMATION
  Report Type: 
  Country: None (occurrence: None)
  Receive Date: 20110727
  Receipt Date: 20110722
  Transmission Date: 20111222
  Serious: Yes (Hospitalization)
  Sender: FDA-Public Use
  Company Number: US-GLAXOSMITHKLINE-A0912966A

PATIENT
  Sex: Female

DRUGS (1)
  1. LAMICTAL [Suspect]
     Indication: EPILEPSY
     Dosage: 100MG UNKNOWN
     Route: 065
     Dates: start: 20030814

REACTIONS (10)
  - POOR QUALITY SLEEP [None]
  - FEAR [None]
  - HAEMORRHAGE [None]
  - DECREASED INTEREST [None]
  - SUICIDAL IDEATION [None]
  - EPILEPSY [None]
  - CONVULSION [None]
  - TREATMENT NONCOMPLIANCE [None]
  - CONFUSIONAL STATE [None]
  - MALAISE [None]
